FAERS Safety Report 16230630 (Version 7)
Quarter: 2019Q4

REPORT INFORMATION
  Report Type: Report from Study
  Country: US (occurrence: US)
  Receive Date: 20190423
  Receipt Date: 20191022
  Transmission Date: 20200122
  Serious: Yes (Death, Hospitalization)
  Sender: FDA-Public Use
  Company Number: US-ACTELION-A-US2019-189462

PATIENT
  Sex: Female
  Weight: 25.4 kg

DRUGS (5)
  1. UPTRAVI [Suspect]
     Active Substance: SELEXIPAG
     Dosage: 200 MCG, TID
     Route: 048
     Dates: start: 20190820
  2. UPTRAVI [Suspect]
     Active Substance: SELEXIPAG
     Dosage: 1200 MCG, BID
     Route: 048
  3. UPTRAVI [Suspect]
     Active Substance: SELEXIPAG
     Indication: PULMONARY ARTERIAL HYPERTENSION
     Dosage: 200 MCG, BID
     Route: 048
  4. UPTRAVI [Suspect]
     Active Substance: SELEXIPAG
     Dosage: 600 MCG, BID
     Route: 048
  5. LETAIRIS [Concomitant]
     Active Substance: AMBRISENTAN

REACTIONS (16)
  - Pain in jaw [Unknown]
  - Death [Fatal]
  - Peripheral swelling [Unknown]
  - Renal pain [Unknown]
  - Hospitalisation [Unknown]
  - Tooth disorder [Unknown]
  - Incorrect dose administered [Unknown]
  - Confusional state [Unknown]
  - Acute kidney injury [Unknown]
  - Dizziness exertional [Unknown]
  - Product dose omission [Unknown]
  - Condition aggravated [Unknown]
  - Nausea [Unknown]
  - Dehydration [Unknown]
  - Cardiac failure congestive [Unknown]
  - Swelling [Unknown]
